FAERS Safety Report 19865138 (Version 1)
Quarter: 2021Q3

REPORT INFORMATION
  Report Type: Report from Study
  Country: ES (occurrence: ES)
  Receive Date: 20210921
  Receipt Date: 20210921
  Transmission Date: 20211014
  Serious: Yes (Other)
  Sender: FDA-Public Use
  Company Number: ES-QED THERAPEUTICS-2118612

PATIENT
  Age: 9 Year
  Sex: Female
  Weight: 26.1 kg

DRUGS (1)
  1. TRUSELTIQ [Suspect]
     Active Substance: INFIGRATINIB
     Indication: CHONDRODYSTROPHY
     Route: 048
     Dates: start: 20210831

REACTIONS (1)
  - Hyperphosphataemia [Unknown]

NARRATIVE: CASE EVENT DATE: 20210902
